FAERS Safety Report 20768849 (Version 4)
Quarter: 2022Q3

REPORT INFORMATION
  Report Type: Report from Study
  Country: IT (occurrence: IT)
  Receive Date: 20220429
  Receipt Date: 20220726
  Transmission Date: 20221026
  Serious: Yes (Other)
  Sender: FDA-Public Use
  Company Number: IT-CELLTRION INC.-2022IT005015

PATIENT

DRUGS (32)
  1. RITUXIMAB [Suspect]
     Active Substance: RITUXIMAB
     Indication: Diffuse large B-cell lymphoma
     Dosage: 743 MG/M2 EVERY 3 WEEKS (DOSE LAST STUDY DRUG ADMIN PRIOR AE IS 713 MG/M2TOTAL VOLUME PRIOR AE IS 50
     Route: 042
     Dates: start: 20211201
  2. CYCLOPHOSPHAMIDE [Suspect]
     Active Substance: CYCLOPHOSPHAMIDE
     Indication: Diffuse large B-cell lymphoma
     Dosage: 1485 MG/M2, EVERY 3 WEEKS (DOSE LAST STUDY DRUG ADMIN PRIOR AE IS 1425 MG/M2TOTAL VOLUME PRIOR AE IS
     Route: 042
     Dates: start: 20211201
  3. DOXORUBICIN [Suspect]
     Active Substance: DOXORUBICIN
     Indication: Diffuse large B-cell lymphoma
     Dosage: 99 MG/M2, EVERY 3 WEEKS (DOSE LAST STUDY DRUG ADMIN PRIOR AE IS 95 MG/M2)
     Route: 042
     Dates: start: 20211201
  4. METHYLPREDNISOLONE [Suspect]
     Active Substance: METHYLPREDNISOLONE
     Indication: Diffuse large B-cell lymphoma
     Dosage: 80 MG (DOSE LAST STUDY DRUG ADMIN PRIOR AE IS 80 MG)
     Route: 048
     Dates: start: 20211201
  5. VINCRISTINE [Suspect]
     Active Substance: VINCRISTINE
     Indication: Diffuse large B-cell lymphoma
     Dosage: 2 MG/M2 EVERY 3 WEEKS (DOSE LAST STUDY DRUG ADMIN PRIOR AE IS 1 MG/M2)
     Route: 042
     Dates: start: 20211201
  6. PREDNISONE [Suspect]
     Active Substance: PREDNISONE
     Indication: Diffuse large B-cell lymphoma
     Dosage: 100 MG (DOSE LAST STUDY DRUG ADMIN PRIOR AE IS 100 MG)
     Route: 048
     Dates: start: 20211202
  7. GLOFITAMAB [Suspect]
     Active Substance: GLOFITAMAB
     Indication: Diffuse large B-cell lymphoma
     Dosage: 2.5 MG EVERY 3 WEEKS (DOSE LAST STUDY DRUG ADMIN PRIOR AE IS 10 MGTOTAL VOLUME PRIOR AE IS 50 ML)
     Route: 042
     Dates: start: 20220126
  8. LYRICA [Concomitant]
     Active Substance: PREGABALIN
     Indication: Cervical spinal stenosis
     Dosage: UNK
     Dates: start: 2008
  9. LYRICA [Concomitant]
     Active Substance: PREGABALIN
     Indication: Lumbar spinal stenosis
  10. DEXAMETHASONE [Concomitant]
     Active Substance: DEXAMETHASONE
     Dosage: 20 MG
     Dates: start: 20220126, end: 20220126
  11. DEXAMETHASONE [Concomitant]
     Active Substance: DEXAMETHASONE
     Dosage: 20 MG
     Dates: start: 20220202, end: 20220202
  12. FILGRASTIM [Concomitant]
     Active Substance: FILGRASTIM
     Indication: Neutropenia
     Dosage: UNK
     Dates: start: 20220127, end: 20220423
  13. LASIX [Concomitant]
     Active Substance: FUROSEMIDE
     Indication: Oedema peripheral
     Dosage: UNK
     Dates: start: 2008
  14. SILODOSIN [Concomitant]
     Active Substance: SILODOSIN
     Indication: Benign prostatic hyperplasia
     Dosage: UNK
     Dates: start: 20220121
  15. ALLOPURINOL [Concomitant]
     Active Substance: ALLOPURINOL
     Indication: Hyperuricaemia
     Dosage: UNK
     Dates: start: 20211124, end: 20220308
  16. GRANISETRON [Concomitant]
     Active Substance: GRANISETRON
     Dosage: 50 ML
     Dates: start: 20220119, end: 20220119
  17. GRANISETRON [Concomitant]
     Active Substance: GRANISETRON
     Dosage: 3 MG
     Dates: start: 20220209, end: 20220209
  18. LIORESAL [Concomitant]
     Active Substance: BACLOFEN
     Indication: Lumbar spinal stenosis
     Dosage: UNK
     Dates: start: 2008
  19. LIORESAL [Concomitant]
     Active Substance: BACLOFEN
     Indication: Cervical spinal stenosis
  20. CHOLECALCIFEROL [Concomitant]
     Active Substance: CHOLECALCIFEROL
     Dosage: UNK
     Dates: start: 20211124
  21. ESOMEPRAZOLE [Concomitant]
     Active Substance: ESOMEPRAZOLE
     Dosage: UNK
     Dates: start: 2008
  22. BACTRIM [Concomitant]
     Active Substance: SULFAMETHOXAZOLE\TRIMETHOPRIM
     Indication: Pneumocystis jirovecii pneumonia
     Dosage: UNK
     Dates: start: 20211201
  23. VALACYCLOVIR HYDROCHLORIDE [Concomitant]
     Active Substance: VALACYCLOVIR HYDROCHLORIDE
     Indication: Herpes zoster
     Dosage: UNK
     Dates: start: 20211201
  24. TERAZOSIN HYDROCHLORIDE [Concomitant]
     Active Substance: TERAZOSIN HYDROCHLORIDE
     Indication: Benign prostatic hyperplasia
     Dosage: UNK
     Dates: start: 2018, end: 20220120
  25. CHLORPHENIRAMINE [Concomitant]
     Active Substance: CHLORPHENIRAMINE
     Dosage: 10 MG
     Dates: start: 20220209, end: 20220209
  26. CHLORPHENIRAMINE [Concomitant]
     Active Substance: CHLORPHENIRAMINE
     Dosage: 10 MG
     Dates: start: 20220202, end: 20220202
  27. CHLORPHENIRAMINE [Concomitant]
     Active Substance: CHLORPHENIRAMINE
     Dosage: 10 MG
     Dates: start: 20220126, end: 20220126
  28. CHLORPHENIRAMINE [Concomitant]
     Active Substance: CHLORPHENIRAMINE
     Dosage: 10 MG
     Dates: start: 20220119, end: 20220119
  29. ACETAMINOPHEN [Concomitant]
     Active Substance: ACETAMINOPHEN
     Dosage: 1000 MG
     Dates: start: 20220209, end: 20220209
  30. ACETAMINOPHEN [Concomitant]
     Active Substance: ACETAMINOPHEN
     Dosage: 1000 MG
     Dates: start: 20220202, end: 20220202
  31. ACETAMINOPHEN [Concomitant]
     Active Substance: ACETAMINOPHEN
     Dosage: 1000 MG
     Dates: start: 20220119, end: 20220119
  32. ACETAMINOPHEN [Concomitant]
     Active Substance: ACETAMINOPHEN
     Dosage: 1000 MG
     Dates: start: 20220126, end: 20220126

REACTIONS (2)
  - Neutropenia [Recovered/Resolved]
  - Overdose [Unknown]

NARRATIVE: CASE EVENT DATE: 20220202
